FAERS Safety Report 25319261 (Version 1)
Quarter: 2025Q2

REPORT INFORMATION
  Report Type: Spontaneous
  Country: US (occurrence: None)
  Receive Date: 20250514
  Receipt Date: 20250514
  Transmission Date: 20250717
  Serious: Yes (Hospitalization)
  Sender: FDA-CTU
  Company Number: None

PATIENT
  Age: 68 Year
  Sex: Male
  Weight: 66.5 kg

DRUGS (1)
  1. TECARTUS [Suspect]
     Active Substance: BREXUCABTAGENE AUTOLEUCEL
     Indication: Acute lymphocytic leukaemia
     Route: 042
     Dates: start: 20250312, end: 20250312

REACTIONS (7)
  - Cytokine release syndrome [None]
  - Immune effector cell-associated neurotoxicity syndrome [None]
  - Epileptic encephalopathy [None]
  - Hypertension [None]
  - Cerebral infarction [None]
  - Alpha haemolytic streptococcal infection [None]
  - Physical deconditioning [None]

NARRATIVE: CASE EVENT DATE: 20250316
